FAERS Safety Report 12651807 (Version 1)
Quarter: 2016Q3

REPORT INFORMATION
  Report Type: Spontaneous
  Country: US (occurrence: US)
  Receive Date: 20160815
  Receipt Date: 20160815
  Transmission Date: 20161109
  Serious: No
  Sender: FDA-Public Use
  Company Number: US-GALDERMA-US16000422

PATIENT
  Age: 38 Year
  Sex: Female

DRUGS (2)
  1. AVALON ORGANICS VITAMIN C GEL CLEANSER [Concomitant]
     Route: 061
  2. DIFFERIN [Suspect]
     Active Substance: ADAPALENE
     Indication: ACNE
     Dosage: 0.3%
     Route: 061
     Dates: end: 201601

REACTIONS (2)
  - Dry skin [Recovered/Resolved]
  - Skin hyperpigmentation [Not Recovered/Not Resolved]
